FAERS Safety Report 9678157 (Version 1)
Quarter: 2013Q4

REPORT INFORMATION
  Report Type: Spontaneous
  Country: US (occurrence: US)
  Receive Date: 20131108
  Receipt Date: 20131108
  Transmission Date: 20140711
  Serious: Yes (Hospitalization)
  Sender: FDA-Public Use
  Company Number: US-SA-2013SA114185

PATIENT
  Age: 73 Year
  Sex: Female
  Weight: 55.3 kg

DRUGS (14)
  1. PLAVIX [Suspect]
     Indication: PRODUCT USED FOR UNKNOWN INDICATION
     Route: 048
  2. ASPIRIN [Suspect]
     Indication: PRODUCT USED FOR UNKNOWN INDICATION
     Route: 065
  3. MATULANE [Suspect]
     Indication: NON-HODGKIN^S LYMPHOMA
     Route: 048
     Dates: start: 20120622, end: 20120719
  4. WARFARIN SODIUM [Suspect]
     Indication: PRODUCT USED FOR UNKNOWN INDICATION
     Route: 065
  5. COZAAR [Concomitant]
  6. SOMA [Concomitant]
  7. LIPITOR [Concomitant]
  8. VICODIN [Concomitant]
  9. IMDUR [Concomitant]
  10. PROCHLORPERAZINE EDISYLATE [Concomitant]
  11. ATIVAN [Concomitant]
  12. COLACE [Concomitant]
  13. VITAMIN D3 [Concomitant]
  14. MELATONIN [Concomitant]

REACTIONS (2)
  - Fall [Unknown]
  - Cerebral haemorrhage [Recovering/Resolving]
